FAERS Safety Report 6059342-9 (Version None)
Quarter: 2009Q1

REPORT INFORMATION
  Report Type: 
  Country: None (occurrence: None)
  Receive Date: 20090130
  Receipt Date: 20090121
  Transmission Date: 20090719
  Serious: Yes (Death)
  Sender: FDA-Public Use
  Company Number: US-JNJFOC-20090105409

PATIENT
  Sex: Female
  Weight: 54.43 kg

DRUGS (4)
  1. FENTANYL-75 [Suspect]
     Indication: PAIN
     Route: 062
  2. PHENOBARBITAL TAB [Concomitant]
     Indication: DRUG USE FOR UNKNOWN INDICATION
  3. RITALIN [Concomitant]
     Indication: DRUG USE FOR UNKNOWN INDICATION
  4. TEGRETOL [Concomitant]
     Indication: DRUG USE FOR UNKNOWN INDICATION

REACTIONS (2)
  - ARTERIOSCLEROSIS [None]
  - EMPHYSEMA [None]
